FAERS Safety Report 9866773 (Version 2)
Quarter: 2014Q1

REPORT INFORMATION
  Report Type: Report from Study
  Country: BE (occurrence: BE)
  Receive Date: 20140204
  Receipt Date: 20140212
  Transmission Date: 20141002
  Serious: Yes (Hospitalization)
  Sender: FDA-Public Use
  Company Number: BE-IPSEN BIOPHARMACEUTICALS, INC.-2014-0398

PATIENT
  Age: 43 Year
  Sex: Male
  Weight: 89.2 kg

DRUGS (3)
  1. SOMATULINE AUTOGEL INJECTABLE 120MG [Suspect]
     Indication: DIARRHOEA
     Dosage: 120 MG
     Route: 058
     Dates: start: 20111122, end: 201302
  2. MIRTAZAPINE [Concomitant]
     Indication: PRODUCT USED FOR UNKNOWN INDICATION
     Dosage: NOT REPORTED
     Route: 065
  3. NEXIAM [Concomitant]
     Indication: PRODUCT USED FOR UNKNOWN INDICATION
     Dosage: NOT REPORTED
     Route: 065

REACTIONS (1)
  - Depression [Not Recovered/Not Resolved]
